FAERS Safety Report 16744980 (Version 4)
Quarter: 2019Q4

REPORT INFORMATION
  Report Type: Spontaneous
  Country: US (occurrence: US)
  Receive Date: 20190827
  Receipt Date: 20191028
  Transmission Date: 20200122
  Serious: Yes (Hospitalization)
  Sender: FDA-Public Use
  Company Number: US-BIOGEN-2019BI00776749

PATIENT
  Sex: Female

DRUGS (1)
  1. TYSABRI [Suspect]
     Active Substance: NATALIZUMAB
     Indication: MULTIPLE SCLEROSIS
     Dosage: INFUSED OVER 1 HOUR
     Route: 042
     Dates: start: 20190812, end: 201909

REACTIONS (5)
  - Nausea [Unknown]
  - Flushing [Unknown]
  - Drug specific antibody present [Unknown]
  - Hypersensitivity [Unknown]
  - Pharyngeal swelling [Unknown]
